FAERS Safety Report 7334977-1 (Version None)
Quarter: 2011Q1

REPORT INFORMATION
  Report Type: 
  Country: None (occurrence: None)
  Receive Date: 20110307
  Receipt Date: 20110225
  Transmission Date: 20110831
  Serious: Yes (Hospitalization, Other)
  Sender: FDA-Public Use
  Company Number: US-JNJFOC-20110300440

PATIENT
  Sex: Female

DRUGS (3)
  1. ANTI DEPRESSANTS [Concomitant]
     Indication: DEPRESSION
     Route: 048
  2. TOPAMAX [Suspect]
     Indication: MIGRAINE PROPHYLAXIS
     Route: 048
  3. TOPIRAMATE [Suspect]
     Indication: MIGRAINE PROPHYLAXIS
     Route: 048

REACTIONS (4)
  - HYSTERECTOMY [None]
  - FIBROMYALGIA [None]
  - INTERVERTEBRAL DISC DEGENERATION [None]
  - DRY MOUTH [None]
